FAERS Safety Report 17542499 (Version 1)
Quarter: 2020Q1

REPORT INFORMATION
  Report Type: Spontaneous
  Country: DK (occurrence: DK)
  Receive Date: 20200314
  Receipt Date: 20200314
  Transmission Date: 20200409
  Serious: Yes (Death)
  Sender: FDA-Public Use
  Company Number: DK-009507513-2003DNK003329

PATIENT
  Age: 70 Year
  Sex: Male
  Weight: 78 kg

DRUGS (7)
  1. METOPROLOLSUCCINAT HEXAL [Concomitant]
     Active Substance: METOPROLOL SUCCINATE
     Indication: ATRIAL FIBRILLATION
     Dosage: 200 MILLIGRAM, QD
     Route: 048
     Dates: start: 20161114
  2. RAMIPRIL HEXAL [Concomitant]
     Active Substance: RAMIPRIL
     Indication: CARDIAC FAILURE
     Dosage: 10 MILLIGRAM, QD
     Route: 048
     Dates: start: 20130414, end: 20200219
  3. INNOHEP [Concomitant]
     Active Substance: TINZAPARIN SODIUM
     Indication: THROMBOSIS PROPHYLAXIS
     Dosage: 1 DOSAGE FORM, QD, STRENGTH: 14.000 ANTI-XA IE, SOLUTION FOR INJECTION IN PRE-FILLED SYRINGE
     Dates: start: 20200204
  4. TRADOLAN [Concomitant]
     Active Substance: TRAMADOL
     Indication: PAIN
     Dosage: 50 MILLIGRAM, AS NECESSARY, DOSE: 1 TABLET AS NECESSARY A MAXIMUM OF 3 TIMES DAILY
     Route: 048
     Dates: start: 20200108, end: 20200219
  5. ACETAMINOPHEN. [Concomitant]
     Active Substance: ACETAMINOPHEN
     Indication: PAIN
     Dosage: 1000 MG, PRN, DOSE: 100 MG AS NECESSARY A MAXIMUM OF 4 TIMES DAILY
     Route: 048
     Dates: start: 2016, end: 20200220
  6. ZARATOR [Concomitant]
     Active Substance: ATORVASTATIN CALCIUM
     Indication: HYPERCHOLESTEROLAEMIA
     Dosage: 80 MILLIGRAM, QD
     Route: 048
     Dates: start: 20151219, end: 20200219
  7. KEYTRUDA [Suspect]
     Active Substance: PEMBROLIZUMAB
     Indication: NON-SMALL CELL LUNG CANCER STAGE IV
     Dosage: 155 MILLIGRAM, Q3W, STRENGTH: 25 MG/ML. DOSE: 155 MG CORRESPONDING TO 2 MG/KG EVERY THIRD WEEK, CONC
     Route: 042
     Dates: start: 20200204

REACTIONS (10)
  - Malaise [Fatal]
  - Liver function test increased [Fatal]
  - Atrial fibrillation [Fatal]
  - Dehydration [Fatal]
  - Pulmonary oedema [Fatal]
  - Hepatic failure [Fatal]
  - Cardiogenic shock [Fatal]
  - Hepatitis toxic [Fatal]
  - Hypotension [Fatal]
  - Atrial flutter [Fatal]

NARRATIVE: CASE EVENT DATE: 2020
